FAERS Safety Report 15601885 (Version 1)
Quarter: 2018Q4

REPORT INFORMATION
  Report Type: Spontaneous
  Country: FR (occurrence: FR)
  Receive Date: 20181109
  Receipt Date: 20181109
  Transmission Date: 20190205
  Serious: Yes (Other)
  Sender: FDA-Public Use
  Company Number: FR-BIOVITRUM-2018FR1367

PATIENT
  Age: 35 Year
  Sex: Female

DRUGS (4)
  1. KINERET [Suspect]
     Active Substance: ANAKINRA
     Indication: STILL^S DISEASE
  2. KINERET [Suspect]
     Active Substance: ANAKINRA
  3. PREDNISONE. [Concomitant]
     Active Substance: PREDNISONE
     Dosage: ORAL AND INTRAVENOUS
  4. IMUREL [Concomitant]
     Active Substance: AZATHIOPRINE SODIUM

REACTIONS (3)
  - Hepatocellular injury [Unknown]
  - Premature rupture of membranes [Unknown]
  - Haemophagocytic lymphohistiocytosis [Unknown]
